FAERS Safety Report 9216283 (Version 1)
Quarter: 2013Q2

REPORT INFORMATION
  Report Type: Report from Study
  Country: US (occurrence: US)
  Receive Date: 20130408
  Receipt Date: 20130408
  Transmission Date: 20140414
  Serious: No
  Sender: FDA-Public Use
  Company Number: US-VERTEX PHARMACEUTICALS INC.-2013-004544

PATIENT
  Sex: Male

DRUGS (6)
  1. VX-950 (TELAPREVIR) [Suspect]
     Indication: HEPATITIS C
     Dosage: 750 MG, TID
     Route: 048
  2. PEGASYS [Suspect]
     Indication: HEPATITIS C
     Dosage: 180 ?G, UNK
  3. RIBAVIRIN [Suspect]
     Indication: HEPATITIS C
     Dosage: 200 MG, UNK
  4. FINASTERIDE [Concomitant]
     Dosage: 5 MG, UNK
  5. FLOMAX [Concomitant]
     Dosage: 0.4 MG, UNK
  6. LOSARTAN POTASSIUM [Concomitant]
     Dosage: 25 MG, UNK

REACTIONS (2)
  - Insomnia [Unknown]
  - Fatigue [Unknown]
